FAERS Safety Report 17121041 (Version 1)
Quarter: 2019Q4

REPORT INFORMATION
  Report Type: Spontaneous
  Country: US (occurrence: US)
  Receive Date: 20191205
  Receipt Date: 20191205
  Transmission Date: 20200122
  Serious: Yes (Disabling)
  Sender: FDA-Public Use
  Company Number: None

PATIENT
  Age: 40 Year
  Sex: Female
  Weight: 74.25 kg

DRUGS (7)
  1. PROBIOTICS NOS\VITAMINS [Concomitant]
     Active Substance: PROBIOTICS NOS\VITAMINS
  2. NARATRIPTAN [Concomitant]
     Active Substance: NARATRIPTAN HYDROCHLORIDE
  3. AIMOVIG [Suspect]
     Active Substance: ERENUMAB-AOOE
     Indication: MIGRAINE
     Dosage: ?          OTHER FREQUENCY:ONCE A MONTH SHOT;?
     Route: 058
  4. MULTIVITAMINS [Concomitant]
     Active Substance: VITAMINS
  5. VIT B 2 [Concomitant]
  6. MAGNIESIUM CHLORIDE\POTASSIUM CHLORIDE\POTASSIUM PHOSPHATE, MONOBASIC [Concomitant]
     Active Substance: MAGNIESIUM CHLORIDE\POTASSIUM CHLORIDE\POTASSIUM PHOSPHATE, MONOBASIC
  7. VIT B 12 [Concomitant]
     Active Substance: CYANOCOBALAMIN

REACTIONS (12)
  - Anxiety [None]
  - Abdominal distension [None]
  - Migraine [None]
  - Malaise [None]
  - Palpitations [None]
  - Menstruation delayed [None]
  - Pain [None]
  - Constipation [None]
  - Cough [None]
  - Lacrimation increased [None]
  - Nausea [None]
  - Fatigue [None]
